FAERS Safety Report 10627747 (Version 1)
Quarter: 2014Q4

REPORT INFORMATION
  Report Type: Spontaneous
  Country: US (occurrence: US)
  Receive Date: 20141205
  Receipt Date: 20141205
  Transmission Date: 20150529
  Serious: No
  Sender: FDA-Public Use
  Company Number: US-BIOGENIDEC-2014BI127523

PATIENT
  Age: 71 Year
  Sex: Male

DRUGS (4)
  1. AVONEX [Suspect]
     Active Substance: INTERFERON BETA-1A
     Indication: MULTIPLE SCLEROSIS
     Route: 030
  2. LOSARTAN POTASSIUM. [Concomitant]
     Active Substance: LOSARTAN POTASSIUM
  3. AMLODIPINE BESYLATE. [Concomitant]
     Active Substance: AMLODIPINE BESYLATE
  4. TRIAMTERENE-HCTZ [Concomitant]
     Active Substance: HYDROCHLOROTHIAZIDE\TRIAMTERENE

REACTIONS (2)
  - Oedema peripheral [Unknown]
  - Hypersensitivity [Unknown]
